FAERS Safety Report 8620354-X (Version None)
Quarter: 2012Q3

REPORT INFORMATION
  Report Type: 
  Country: None (occurrence: None)
  Receive Date: 20120824
  Receipt Date: 20110606
  Transmission Date: 20120928
  Serious: Yes (Hospitalization)
  Sender: FDA-Public Use
  Company Number: US-GLAXOSMITHKLINE-A0932386A

PATIENT
  Age: 65 Year
  Sex: Male
  Weight: 108.2 kg

DRUGS (1)
  1. AVANDIA [Suspect]
     Indication: DIABETES MELLITUS
     Dosage: 4MG PER DAY
     Route: 048
     Dates: start: 20020201

REACTIONS (2)
  - STENT PLACEMENT [None]
  - CORONARY ARTERY DISEASE [None]
